FAERS Safety Report 5002023-0 (Version None)
Quarter: 2006Q2

REPORT INFORMATION
  Report Type: 
  Country: None (occurrence: None)
  Receive Date: 20060515
  Receipt Date: 20060117
  Transmission Date: 20061013
  Serious: Yes (Hospitalization, Disabling)
  Sender: FDA-Public Use
  Company Number: US-MERCK-0601USA01974

PATIENT
  Age: 53 Year
  Sex: Female
  Weight: 120 kg

DRUGS (4)
  1. VIOXX [Suspect]
     Indication: BACK PAIN
     Route: 048
     Dates: start: 20010726, end: 20020801
  2. ZETIA [Concomitant]
     Indication: BLOOD CHOLESTEROL
     Route: 048
     Dates: start: 20000101
  3. ACCUPRIL [Concomitant]
     Indication: HYPERTENSION
     Route: 065
     Dates: start: 20000101
  4. LESCOL [Concomitant]
     Indication: HYPERTENSION
     Route: 065

REACTIONS (8)
  - ACCIDENT AT WORK [None]
  - BACK INJURY [None]
  - CEREBROVASCULAR ACCIDENT [None]
  - FALL [None]
  - KNEE OPERATION [None]
  - OBESITY [None]
  - OEDEMA PERIPHERAL [None]
  - RHEUMATOID ARTHRITIS [None]
